FAERS Safety Report 14055860 (Version 2)
Quarter: 2017Q4

REPORT INFORMATION
  Report Type: Report from Study
  Country: AR (occurrence: AR)
  Receive Date: 20171006
  Receipt Date: 20171010
  Transmission Date: 20180321
  Serious: Yes (Death, Other)
  Sender: FDA-Public Use
  Company Number: PHHY2017AR146763

PATIENT
  Sex: Male

DRUGS (1)
  1. COSENTYX [Suspect]
     Active Substance: SECUKINUMAB
     Indication: PSORIASIS
     Dosage: 150 MG, UNK
     Route: 065
     Dates: start: 20170102, end: 201701

REACTIONS (5)
  - Visual impairment [Unknown]
  - Hypoxia [Unknown]
  - Malignant neoplasm of pleura [Fatal]
  - Pulmonary mass [Unknown]
  - Pleural effusion [Unknown]
